FAERS Safety Report 19433135 (Version 1)
Quarter: 2021Q2

REPORT INFORMATION
  Report Type: Spontaneous
  Country: MA (occurrence: MA)
  Receive Date: 20210617
  Receipt Date: 20210617
  Transmission Date: 20210717
  Serious: Yes (Death, Other)
  Sender: FDA-Public Use
  Company Number: MA-PFIZER INC-2021507279

PATIENT

DRUGS (1)
  1. XALKORI [Suspect]
     Active Substance: CRIZOTINIB
     Indication: CUTANEOUS T-CELL LYMPHOMA
     Dosage: 250 MG (1 TABLET) TWICE DAILY

REACTIONS (3)
  - Death [Fatal]
  - Off label use [Unknown]
  - Drug effective for unapproved indication [Unknown]
